FAERS Safety Report 20947395 (Version 1)
Quarter: 2022Q2

REPORT INFORMATION
  Report Type: Spontaneous
  Country: JP (occurrence: JP)
  Receive Date: 20220610
  Receipt Date: 20220610
  Transmission Date: 20220721
  Serious: Yes (Death, Other)
  Sender: FDA-Public Use
  Company Number: JP-JAZZ-2022-JP-019119

PATIENT
  Sex: Male
  Weight: 7.2 kg

DRUGS (1)
  1. DEFITELIO [Suspect]
     Active Substance: DEFIBROTIDE SODIUM
     Indication: Venoocclusive liver disease
     Dosage: 25 MILLIGRAM/KILOGRAM, QD (25 MG/KG/24 HOURS)
     Route: 042
     Dates: start: 20210205, end: 20210224

REACTIONS (3)
  - Sepsis [Fatal]
  - Immunodeficiency congenital [Fatal]
  - Purpura [Not Recovered/Not Resolved]

NARRATIVE: CASE EVENT DATE: 20210215
